FAERS Safety Report 9169094 (Version 1)
Quarter: 2013Q1

REPORT INFORMATION
  Report Type: Spontaneous
  Country: IE (occurrence: IE)
  Receive Date: 20130318
  Receipt Date: 20130318
  Transmission Date: 20140127
  Serious: Yes (Life-Threatening)
  Sender: FDA-Public Use
  Company Number: IE-ASTRAZENECA-2013SE17170

PATIENT
  Age: 70 Year
  Sex: Male

DRUGS (1)
  1. BRILIQUE [Suspect]
     Route: 048

REACTIONS (4)
  - Acute myocardial infarction [Unknown]
  - Unresponsive to stimuli [Unknown]
  - Haemorrhage intracranial [Not Recovered/Not Resolved]
  - Headache [Unknown]
